FAERS Safety Report 5584810-3 (Version None)
Quarter: 2008Q1

REPORT INFORMATION
  Report Type: 
  Country: None (occurrence: None)
  Receive Date: 20080104
  Receipt Date: 20071225
  Transmission Date: 20080703
  Serious: Yes (Other)
  Sender: FDA-Public Use
  Company Number: CHPA2007US14510

PATIENT
  Age: 10 Year
  Sex: Female

DRUGS (1)
  1. TRIAMINIC THIN STRIPS-COUGH AND RUNNY NOSE (NCH) (DIPHENHYDRAMINE HYDR [Suspect]
     Indication: NASOPHARYNGITIS
     Dosage: 25 MG, ONCE/SINGLE, ORAL
     Route: 048
     Dates: start: 20071225

REACTIONS (3)
  - FACIAL PALSY [None]
  - INCORRECT DOSE ADMINISTERED [None]
  - VIRAL INFECTION [None]
